FAERS Safety Report 10073168 (Version 1)
Quarter: 2014Q2

REPORT INFORMATION
  Report Type: Spontaneous
  Country: US (occurrence: US)
  Receive Date: 20140411
  Receipt Date: 20140411
  Transmission Date: 20141212
  Serious: No
  Sender: FDA-Public Use
  Company Number: US-009507513-1404USA003490

PATIENT
  Age: 4 Year
  Sex: 0

DRUGS (1)
  1. TEMODAR [Suspect]
     Dosage: 50 MG, QD

REACTIONS (2)
  - Drug administered to patient of inappropriate age [Unknown]
  - No adverse event [Unknown]
